FAERS Safety Report 20363315 (Version 1)
Quarter: 2022Q1

REPORT INFORMATION
  Report Type: Spontaneous
  Country: CA (occurrence: CA)
  Receive Date: 20220121
  Receipt Date: 20220121
  Transmission Date: 20220424
  Serious: Yes (Life-Threatening, Other)
  Sender: FDA-Public Use
  Company Number: CA-PFIZER INC-202200046323

PATIENT
  Age: 3 Year
  Sex: Female
  Weight: 12 kg

DRUGS (33)
  1. CARBOPLATIN [Suspect]
     Active Substance: CARBOPLATIN
     Indication: Prophylaxis against transplant rejection
     Dosage: 285 MG
     Route: 042
  2. CARBOPLATIN [Suspect]
     Active Substance: CARBOPLATIN
     Dosage: 275 MG
     Route: 042
  3. THIOTEPA [Suspect]
     Active Substance: THIOTEPA
     Indication: Prophylaxis against transplant rejection
     Dosage: 170 MG
     Route: 042
  4. ACYCLOVIR [Concomitant]
     Active Substance: ACYCLOVIR
  5. ATROPINE [Concomitant]
     Active Substance: ATROPINE
  6. CEFTAZIDIME [Concomitant]
     Active Substance: CEFTAZIDIME
  7. CETIRIZINE [Concomitant]
     Active Substance: CETIRIZINE HYDROCHLORIDE
  8. CHOLECALCIFEROL [Concomitant]
     Active Substance: CHOLECALCIFEROL
  9. DEXMEDETOMIDINE [Concomitant]
     Active Substance: DEXMEDETOMIDINE
  10. FAMOTIDINE [Concomitant]
     Active Substance: FAMOTIDINE
  11. FLUCONAZOLE [Concomitant]
     Active Substance: FLUCONAZOLE
  12. FUROSEMIDE [Concomitant]
     Active Substance: FUROSEMIDE
  13. HYDROXYZINE [Concomitant]
     Active Substance: HYDROXYZINE HYDROCHLORIDE
  14. LEVETIRACETAM [Concomitant]
     Active Substance: LEVETIRACETAM
     Route: 065
  15. LORAZEPAM [Concomitant]
     Active Substance: LORAZEPAM
  16. MAGNESIUM [Concomitant]
     Active Substance: MAGNESIUM
  17. MEROPENEM [Concomitant]
     Active Substance: MEROPENEM
  18. METHYLPREDNISOLONE [Concomitant]
     Active Substance: METHYLPREDNISOLONE
  19. METOCLOPRAMIDE [Concomitant]
     Active Substance: METOCLOPRAMIDE
  20. METOLAZONE [Concomitant]
     Active Substance: METOLAZONE
  21. MIDAZOLAM [Concomitant]
     Active Substance: MIDAZOLAM
  22. MONTELUKAST [Concomitant]
     Active Substance: MONTELUKAST SODIUM
  23. MYCAMINE [Concomitant]
     Active Substance: MICAFUNGIN SODIUM
  24. NOREPINEPHRINE [Concomitant]
     Active Substance: NOREPINEPHRINE
  25. OLANZAPINE [Concomitant]
     Active Substance: OLANZAPINE
  26. ONDANSETRON [Concomitant]
     Active Substance: ONDANSETRON
  27. PENTAM [Concomitant]
     Active Substance: PENTAMIDINE ISETHIONATE
  28. POTASSIUM [Concomitant]
     Active Substance: POTASSIUM
  29. PROBENECID [Concomitant]
     Active Substance: PROBENECID
  30. ROCURONIUM [Concomitant]
     Active Substance: ROCURONIUM BROMIDE
  31. SULFAMETHOXAZOLE\TRIMETHOPRIM [Concomitant]
     Active Substance: SULFAMETHOXAZOLE\TRIMETHOPRIM
  32. URSODIOL [Concomitant]
     Active Substance: URSODIOL
  33. VISTIDE [Concomitant]
     Active Substance: CIDOFOVIR

REACTIONS (4)
  - Aplastic anaemia [Not Recovered/Not Resolved]
  - Febrile neutropenia [Not Recovered/Not Resolved]
  - Mucosal inflammation [Not Recovered/Not Resolved]
  - Off label use [Unknown]
